FAERS Safety Report 12084218 (Version 2)
Quarter: 2016Q1

REPORT INFORMATION
  Report Type: Spontaneous
  Country: JP (occurrence: JP)
  Receive Date: 20160217
  Receipt Date: 20160303
  Transmission Date: 20160526
  Serious: Yes (Hospitalization, Other)
  Sender: FDA-Public Use
  Company Number: JP-GLAXOSMITHKLINE-JP2016JPN007665

PATIENT
  Age: 59 Year
  Sex: Female
  Weight: 38 kg

DRUGS (5)
  1. BARACLUDE [Concomitant]
     Active Substance: ENTECAVIR
     Indication: CHRONIC HEPATITIS B
     Dosage: UNK
     Route: 048
  2. EDIROL [Concomitant]
     Active Substance: ELDECALCITOL
     Dosage: 0.5 ?G, 1D
     Dates: start: 201407
  3. HEPSERA [Suspect]
     Active Substance: ADEFOVIR DIPIVOXIL
     Indication: CHRONIC HEPATITIS B
     Dosage: 10 MG, 1D
     Route: 048
     Dates: start: 20080710, end: 20150129
  4. ZEFIX [Suspect]
     Active Substance: LAMIVUDINE
     Indication: CHRONIC HEPATITIS B
     Dosage: 100 MG, 1D
     Route: 048
     Dates: start: 20080710
  5. EVISTA [Concomitant]
     Active Substance: RALOXIFENE HYDROCHLORIDE
     Dosage: 60 MG, 1D
     Dates: start: 201407

REACTIONS (15)
  - Hypophosphataemia [Recovering/Resolving]
  - Fanconi syndrome [Recovering/Resolving]
  - Rib fracture [Recovering/Resolving]
  - Chest pain [Recovering/Resolving]
  - Pain in extremity [Recovering/Resolving]
  - Renal glycosuria [Recovering/Resolving]
  - Renal disorder [Recovering/Resolving]
  - Arthralgia [Recovering/Resolving]
  - Fractional excretion of phosphate [Recovering/Resolving]
  - Hypouricaemia [Recovering/Resolving]
  - Muscular weakness [Recovering/Resolving]
  - Blood alkaline phosphatase increased [Recovering/Resolving]
  - Peripheral swelling [Recovering/Resolving]
  - Gait disturbance [Recovering/Resolving]
  - Beta 2 microglobulin increased [Recovering/Resolving]

NARRATIVE: CASE EVENT DATE: 2012
